FAERS Safety Report 7525754-7 (Version None)
Quarter: 2011Q2

REPORT INFORMATION
  Report Type: 
  Country: None (occurrence: None)
  Receive Date: 20110526
  Receipt Date: 20110524
  Transmission Date: 20111010
  Serious: Yes (Life-Threatening)
  Sender: FDA-Public Use
  Company Number: SP03707

PATIENT
  Sex: Male

DRUGS (2)
  1. MOVIPREP [Suspect]
     Indication: COLONOSCOPY
     Dosage: ORAL
     Route: 048
     Dates: start: 20110401, end: 20110401
  2. MOVIPREP [Suspect]
     Indication: PREOPERATIVE CARE
     Dosage: ORAL
     Route: 048
     Dates: start: 20110401, end: 20110401

REACTIONS (3)
  - HYPOKALAEMIA [None]
  - VOMITING [None]
  - VENTRICULAR FIBRILLATION [None]
